FAERS Safety Report 5738257-7 (Version None)
Quarter: 2008Q2

REPORT INFORMATION
  Report Type: 
  Country: None (occurrence: None)
  Receive Date: 20080514
  Receipt Date: 20080506
  Transmission Date: 20081010
  Serious: Yes (Hospitalization, Other)
  Sender: FDA-Public Use
  Company Number: US-PFIZER INC-2008039570

PATIENT
  Sex: Male

DRUGS (2)
  1. LIPITOR [Suspect]
  2. ANAESTHETICS [Suspect]
     Indication: SURGERY

REACTIONS (3)
  - NEURALGIA [None]
  - RHABDOMYOLYSIS [None]
  - SURGERY [None]
